FAERS Safety Report 16683224 (Version 2)
Quarter: 2020Q1

REPORT INFORMATION
  Report Type: Spontaneous
  Country: GB (occurrence: GB)
  Receive Date: 20190808
  Receipt Date: 20200309
  Transmission Date: 20200409
  Serious: Yes (Life-Threatening)
  Sender: FDA-Public Use
  Company Number: GB-TEVA-2019-GB-1090135

PATIENT
  Age: 82 Year
  Sex: Female
  Weight: 79 kg

DRUGS (14)
  1. CO-AMOXICLAV [Suspect]
     Active Substance: AMOXICILLIN\CLAVULANATE POTASSIUM
     Dosage: 500MG/125MG
     Route: 048
     Dates: start: 20190704
  2. LANSOPRAZOLE. [Concomitant]
     Active Substance: LANSOPRAZOLE
     Dosage: 1 DOSAGE FORMS
     Dates: start: 20150818
  3. FUROSEMIDE. [Concomitant]
     Active Substance: FUROSEMIDE
     Dosage: 1 DOSAGE FORMS DAILY; EACH MORNING
     Dates: start: 20190612
  4. BISOPROLOL [Concomitant]
     Active Substance: BISOPROLOL
     Dosage: 1 DOSAGE FORMS
     Dates: start: 20190110
  5. DIAZEPAM. [Concomitant]
     Active Substance: DIAZEPAM
     Dosage: 4 DOSAGE FORMS DAILY; 1 TO BE TAKEN FOUR TIMES DAILY.
     Dates: start: 20190424
  6. DOSULEPIN HYDROCHLORIDE [Concomitant]
     Active Substance: DOTHIEPIN HYDROCHLORIDE
     Dosage: 2 DOSAGE FORMS DAILY; AT NIGHT.
     Dates: start: 20140530
  7. LORAZEPAM. [Concomitant]
     Active Substance: LORAZEPAM
     Dosage: HALF A TABLET TWICE A DAY
     Dates: start: 20190215, end: 20190424
  8. LOPERAMIDE [Concomitant]
     Active Substance: LOPERAMIDE
     Dosage: 3 DOSAGE FORMS
     Dates: start: 20190424, end: 20190504
  9. GLICLAZIDE [Concomitant]
     Active Substance: GLICLAZIDE
     Dosage: 1 DOSAGE FORMS
     Dates: start: 20161201
  10. CIPROFLOXACIN. [Concomitant]
     Active Substance: CIPROFLOXACIN
     Dosage: 2 DOSAGE FORMS
     Dates: start: 20190424, end: 20190429
  11. AMLODIPINE [Concomitant]
     Active Substance: AMLODIPINE BESYLATE
     Dosage: 1 DOSAGE FORMS
     Dates: start: 20190521
  12. CITALOPRAM [Concomitant]
     Active Substance: CITALOPRAM HYDROBROMIDE
     Dosage: USE AS DIRECTED
     Dates: start: 20190521, end: 20190618
  13. SALBUTAMOL [Concomitant]
     Active Substance: ALBUTEROL
     Dosage: PUFFS OF THE INHALER, 8 DOSAGE FORMS
     Dates: start: 20190704
  14. IBUPROFEN. [Concomitant]
     Active Substance: IBUPROFEN
     Dosage: 3 DOSAGE FORMS
     Dates: start: 20190128

REACTIONS (2)
  - Dyspnoea [Recovered/Resolved]
  - Paraesthesia oral [Recovered/Resolved]

NARRATIVE: CASE EVENT DATE: 20190705
